FAERS Safety Report 11793053 (Version 1)
Quarter: 2015Q4

REPORT INFORMATION
  Report Type: Spontaneous
  Country: ZA (occurrence: ZA)
  Receive Date: 20151202
  Receipt Date: 20151202
  Transmission Date: 20160305
  Serious: Yes (Life-Threatening, Hospitalization)
  Sender: FDA-Public Use
  Company Number: ZA-WATSON-2015-26101

PATIENT
  Sex: Female

DRUGS (8)
  1. ETHIONAMIDE [Suspect]
     Active Substance: ETHIONAMIDE
     Indication: TUBERCULOSIS
     Dosage: UNK
     Route: 065
     Dates: start: 200307
  2. PYRAZINAMIDE. [Concomitant]
     Active Substance: PYRAZINAMIDE
     Indication: TUBERCULOSIS
     Dosage: UNK
     Route: 065
     Dates: start: 200307
  3. OFLOXACINE (UNKNOWN) [Suspect]
     Active Substance: OFLOXACIN
     Indication: TUBERCULOSIS
     Dosage: UNK
     Route: 065
     Dates: start: 200307
  4. ETHAMBUTOL [Suspect]
     Active Substance: ETHAMBUTOL HYDROCHLORIDE
     Indication: TUBERCULOSIS
     Dosage: UNK
     Route: 065
     Dates: start: 200307
  5. CLOFAZIMINE [Concomitant]
     Active Substance: CLOFAZIMINE
     Indication: TUBERCULOSIS
     Dosage: UNK
     Route: 065
     Dates: start: 200311
  6. KANAMYCIN SULFATE (WATSON LABORATORIES) [Suspect]
     Active Substance: KANAMYCIN SULFATE
     Indication: TUBERCULOSIS
     Dosage: UNK
     Route: 065
     Dates: start: 200307
  7. AMIKACIN [Suspect]
     Active Substance: AMIKACIN
     Indication: TUBERCULOSIS
     Dosage: UNK
     Route: 065
     Dates: start: 200307
  8. TERIZIDONE [Concomitant]
     Active Substance: TERIZIDONE
     Indication: TUBERCULOSIS
     Dosage: UNK
     Route: 065
     Dates: start: 200311

REACTIONS (8)
  - Bronchiectasis [None]
  - Pathogen resistance [Recovered/Resolved]
  - Haemoptysis [None]
  - Skin hyperpigmentation [None]
  - Drug ineffective [Recovered/Resolved]
  - Inappropriate schedule of drug administration [None]
  - Arthralgia [None]
  - Abdominal distension [None]
